APPROVED DRUG PRODUCT: OXYCODONE AND ASPIRIN
Active Ingredient: ASPIRIN; OXYCODONE HYDROCHLORIDE
Strength: 325MG;4.8355MG
Dosage Form/Route: TABLET;ORAL
Application: A040910 | Product #001 | TE Code: AA
Applicant: EPIC PHARMA LLC
Approved: Jul 16, 2020 | RLD: No | RS: No | Type: RX